FAERS Safety Report 7150888-9 (Version None)
Quarter: 2010Q4

REPORT INFORMATION
  Report Type: 
  Country: None (occurrence: None)
  Receive Date: 20101207
  Receipt Date: 20101207
  Transmission Date: 20110411
  Serious: No
  Sender: FDA-Public Use
  Company Number: None

PATIENT
  Sex: Female
  Weight: 72 kg

DRUGS (5)
  1. BUSULFAN [Suspect]
     Dosage: 896 MG
  2. CYCLOPHOSPHAMIDE [Suspect]
     Dosage: 3840 MG
  3. CYTARABINE [Suspect]
     Dosage: 66730 MG
  4. DAUNORUBICIN [Suspect]
     Dosage: 510 MG
  5. GM-CSF (SARGRAMOSTIM, LEUKINE) [Suspect]
     Dosage: 2500 MG

REACTIONS (3)
  - DIZZINESS [None]
  - IRON DEFICIENCY ANAEMIA [None]
  - MYELODYSPLASTIC SYNDROME [None]
